FAERS Safety Report 22053547 (Version 1)
Quarter: 2023Q1

REPORT INFORMATION
  Report Type: Spontaneous
  Country: US (occurrence: None)
  Receive Date: 20230228
  Receipt Date: 20230228
  Transmission Date: 20230418
  Serious: No
  Sender: FDA-Public Use
  Company Number: None

PATIENT
  Age: 56 Year
  Sex: Female
  Weight: 73.48 kg

DRUGS (1)
  1. TERIPARATIDE [Suspect]
     Active Substance: TERIPARATIDE
     Indication: Osteoporosis
     Dosage: INJECT 20MCG SUBCUTANEOUSLY DAILY AS DIRECTED
     Route: 058
     Dates: start: 202206

REACTIONS (3)
  - Dyspnoea [None]
  - Therapy interrupted [None]
  - Insurance issue [None]
